FAERS Safety Report 7542827-3 (Version None)
Quarter: 2011Q2

REPORT INFORMATION
  Report Type: 
  Country: None (occurrence: None)
  Receive Date: 20110524
  Receipt Date: 20110221
  Transmission Date: 20111010
  Serious: No
  Sender: FDA-Public Use
  Company Number: 018636

PATIENT
  Sex: Female
  Weight: 88.5 kg

DRUGS (6)
  1. CIMZIA [Suspect]
     Indication: CROHN'S DISEASE
     Dosage: (400 MG 1X/MONTH, TWO SHOTS MONTHLY SUBCUTANEOUS)
     Route: 058
     Dates: start: 20100801, end: 20110201
  2. SIMVASTATIN [Concomitant]
  3. SPRINTEC [Concomitant]
  4. PREDNISONE [Concomitant]
  5. VITAMIN D [Concomitant]
  6. MULTI-VITAMINS [Concomitant]

REACTIONS (10)
  - HEADACHE [None]
  - SKIN STRIAE [None]
  - ASTHENIA [None]
  - INJECTION SITE HAEMORRHAGE [None]
  - NAUSEA [None]
  - RASH [None]
  - INJECTION SITE HAEMATOMA [None]
  - URTICARIA [None]
  - HYPERSENSITIVITY [None]
  - DIZZINESS [None]
